FAERS Safety Report 4788607-3 (Version None)
Quarter: 2005Q4

REPORT INFORMATION
  Report Type: 
  Country: None (occurrence: None)
  Receive Date: 20051005
  Receipt Date: 20050929
  Transmission Date: 20060501
  Serious: Yes (Life-Threatening, Hospitalization)
  Sender: FDA-Public Use
  Company Number: 200516959US

PATIENT
  Sex: Male
  Weight: 60 kg

DRUGS (8)
  1. NASACORT AQ [Suspect]
     Dosage: DOSE: 1 SPRAY EACH NOSTRIL
     Route: 045
     Dates: start: 20050921, end: 20050921
  2. ASTELIN [Concomitant]
     Dosage: DOSE: UNKNOWN
     Route: 045
     Dates: start: 20050921
  3. DIGITEK [Concomitant]
     Route: 048
     Dates: start: 20050918
  4. XOPENEX [Concomitant]
     Dosage: DOSE: UNKNOWN
     Route: 055
  5. ZANTAC [Concomitant]
     Dosage: DOSE: UNKNOWN
     Route: 048
  6. TOPROL-XL [Concomitant]
     Route: 048
  7. COZAAR [Concomitant]
     Route: 048
  8. ALBUTEROL [Concomitant]
     Dosage: DOSE: UNKNOWN
     Route: 055

REACTIONS (6)
  - APNOEA [None]
  - CARDIAC ARREST [None]
  - CIRCULATORY COLLAPSE [None]
  - DRUG HYPERSENSITIVITY [None]
  - FALL [None]
  - MUSCLE TIGHTNESS [None]
